FAERS Safety Report 17855582 (Version 3)
Quarter: 2024Q2

REPORT INFORMATION
  Report Type: Spontaneous
  Country: SK (occurrence: SK)
  Receive Date: 20200603
  Receipt Date: 20240516
  Transmission Date: 20240715
  Serious: Yes (Hospitalization, Other)
  Sender: FDA-Public Use
  Company Number: SK-SERVIER-S20003595

PATIENT
  Age: 31 Year
  Sex: Male

DRUGS (6)
  1. PERINDOPRIL [Suspect]
     Active Substance: PERINDOPRIL
     Indication: Sinus tachycardia
     Dosage: UNK
     Route: 065
     Dates: start: 201904, end: 201904
  2. EPLERENONE [Suspect]
     Active Substance: EPLERENONE
     Indication: Sinus tachycardia
     Dosage: UNK
     Route: 065
     Dates: start: 201904
  3. BISOPROLOL [Suspect]
     Active Substance: BISOPROLOL\BISOPROLOL FUMARATE
     Indication: Sinus tachycardia
     Dosage: UNK
     Route: 065
     Dates: start: 201904, end: 201904
  4. FUROSEMIDE [Suspect]
     Active Substance: FUROSEMIDE
     Indication: Sinus tachycardia
     Dosage: UNK
     Route: 065
     Dates: start: 201904
  5. FUROSEMIDE [Concomitant]
     Active Substance: FUROSEMIDE
     Indication: Sinus tachycardia
     Dosage: UNK
     Route: 065
     Dates: start: 201904
  6. FUROSEMIDE [Concomitant]
     Active Substance: FUROSEMIDE
     Dosage: UNK (TITRATION)
     Route: 065
     Dates: start: 2019

REACTIONS (6)
  - Circulatory collapse [Unknown]
  - Renal disorder [Unknown]
  - Hypotension [Unknown]
  - Renal impairment [Unknown]
  - Dizziness [Recovered/Resolved]
  - Vertigo [Recovered/Resolved]

NARRATIVE: CASE EVENT DATE: 20190101
